FAERS Safety Report 19643874 (Version 1)
Quarter: 2021Q3

REPORT INFORMATION
  Report Type: Report from Study
  Country: AR (occurrence: AR)
  Receive Date: 20210730
  Receipt Date: 20210730
  Transmission Date: 20211014
  Serious: Yes (Other)
  Sender: FDA-Public Use
  Company Number: NVSC2021AR168471

PATIENT
  Age: 74 Year
  Sex: Female

DRUGS (1)
  1. COSENTYX [Suspect]
     Active Substance: SECUKINUMAB
     Indication: PSORIATIC ARTHROPATHY
     Dosage: 300 MG, QMO
     Route: 058
     Dates: start: 20181005

REACTIONS (5)
  - Tension [Unknown]
  - Cardiac failure [Unknown]
  - Arthralgia [Unknown]
  - Shock [Unknown]
  - Nervousness [Unknown]

NARRATIVE: CASE EVENT DATE: 20210501
